FAERS Safety Report 8258871-7 (Version None)
Quarter: 2012Q2

REPORT INFORMATION
  Report Type: 
  Country: None (occurrence: None)
  Receive Date: 20120404
  Receipt Date: 20120328
  Transmission Date: 20120825
  Serious: Yes (Disabling)
  Sender: FDA-Public Use
  Company Number: CH-SANOFI-AVENTIS-2012SA013476

PATIENT
  Age: 83 Year
  Sex: Male

DRUGS (4)
  1. PREDNISONE TAB [Suspect]
     Route: 065
  2. TAXOTERE [Suspect]
     Route: 042
  3. ATACAND [Concomitant]
     Route: 048
  4. ZOMETA [Suspect]
     Route: 042
     Dates: start: 20101020, end: 20110615

REACTIONS (3)
  - INFLAMMATION [None]
  - FISTULA [None]
  - OSTEONECROSIS OF JAW [None]
